FAERS Safety Report 5340065-6 (Version None)
Quarter: 2007Q2

REPORT INFORMATION
  Report Type: 
  Country: None (occurrence: None)
  Receive Date: 20070405
  Receipt Date: 20061113
  Transmission Date: 20071010
  Serious: Yes (Other)
  Sender: FDA-Public Use
  Company Number: US200611002390

PATIENT
  Sex: Female

DRUGS (4)
  1. CYMBALTA [Suspect]
     Indication: HERPES ZOSTER
     Dosage: 60 MG, DAILY (1/D)
     Dates: start: 20061001
  2. CHOLESTEROL (CHOLESTEROL) [Concomitant]
  3. THYROID TAB [Concomitant]
  4. ASPIRIN [Concomitant]

REACTIONS (1)
  - GLAUCOMA [None]
